FAERS Safety Report 24467279 (Version 1)
Quarter: 2024Q4

REPORT INFORMATION
  Report Type: Spontaneous
  Country: US (occurrence: US)
  Receive Date: 20241018
  Receipt Date: 20241018
  Transmission Date: 20250115
  Serious: No
  Sender: ROCHE
  Company Number: US-ROCHE-3569525

PATIENT
  Age: 76 Year
  Sex: Male
  Weight: 71.6 kg

DRUGS (2)
  1. XOLAIR [Suspect]
     Active Substance: OMALIZUMAB
     Indication: Product used for unknown indication
     Dosage: 2X/MONTH
     Route: 065
  2. LIPITOR [Concomitant]
     Active Substance: ATORVASTATIN CALCIUM

REACTIONS (7)
  - Musculoskeletal disorder [Unknown]
  - Arthralgia [Unknown]
  - Ligament rupture [Unknown]
  - Tendon rupture [Unknown]
  - Pain in extremity [Unknown]
  - Arthralgia [Unknown]
  - Ligament sprain [Unknown]
